FAERS Safety Report 8419407-0 (Version None)
Quarter: 2012Q2

REPORT INFORMATION
  Report Type: 
  Country: None (occurrence: None)
  Receive Date: 20120607
  Receipt Date: 20120531
  Transmission Date: 20120825
  Serious: Yes (Hospitalization)
  Sender: FDA-Public Use
  Company Number: US-GLAXOSMITHKLINE-A0941908A

PATIENT
  Age: 59 Year
  Sex: Male
  Weight: 129.5 kg

DRUGS (3)
  1. GLYBURIDE [Concomitant]
  2. METOLAZONE [Concomitant]
  3. AVANDIA [Suspect]
     Indication: DIABETES MELLITUS
     Dosage: 2MG PER DAY
     Route: 048
     Dates: start: 20050101, end: 20080101

REACTIONS (5)
  - MYOCARDIAL INFARCTION [None]
  - HYPERLIPIDAEMIA [None]
  - CEREBROVASCULAR ACCIDENT [None]
  - CARDIAC FAILURE CONGESTIVE [None]
  - ISCHAEMIC CARDIOMYOPATHY [None]
